FAERS Safety Report 25185758 (Version 1)
Quarter: 2025Q2

REPORT INFORMATION
  Report Type: Spontaneous
  Country: DE (occurrence: DE)
  Receive Date: 20250410
  Receipt Date: 20250410
  Transmission Date: 20250716
  Serious: Yes (Other)
  Sender: ELI LILLY AND CO
  Company Number: DE-ELI_LILLY_AND_COMPANY-DE202502017044

PATIENT
  Age: 75 Year
  Sex: Female
  Weight: 62 kg

DRUGS (3)
  1. LYUMJEV [Suspect]
     Active Substance: INSULIN LISPRO-AABC
     Indication: Type 1 diabetes mellitus
     Dosage: 20 INTERNATIONAL UNIT, EACH MORNING, THEN AS NEEDED (ACCORDING TO EATING)
     Route: 058
     Dates: start: 202502
  2. LEVOTHYROXINE SODIUM [Concomitant]
     Active Substance: LEVOTHYROXINE SODIUM
     Indication: Product used for unknown indication
  3. ROSUVASTATIN [Concomitant]
     Active Substance: ROSUVASTATIN
     Indication: Product used for unknown indication

REACTIONS (6)
  - Blood glucose abnormal [Unknown]
  - Blood glucose fluctuation [Unknown]
  - Hypoglycaemia [Unknown]
  - Incorrect dose administered [Unknown]
  - Glycosylated haemoglobin increased [Unknown]
  - Wrong technique in product usage process [Unknown]

NARRATIVE: CASE EVENT DATE: 20250201
